FAERS Safety Report 19912056 (Version 3)
Quarter: 2021Q4

REPORT INFORMATION
  Report Type: Spontaneous
  Country: PR (occurrence: US)
  Receive Date: 20211004
  Receipt Date: 20211129
  Transmission Date: 20220303
  Serious: Yes (Other)
  Sender: FDA-Public Use
  Company Number: PR-JNJFOC-20210958851

PATIENT
  Age: 8 Decade
  Sex: Female

DRUGS (11)
  1. ELMIRON [Suspect]
     Active Substance: PENTOSAN POLYSULFATE SODIUM
     Indication: Cystitis interstitial
     Route: 048
     Dates: start: 200908, end: 201610
  2. ELMIRON [Suspect]
     Active Substance: PENTOSAN POLYSULFATE SODIUM
     Route: 048
     Dates: start: 201611, end: 201702
  3. ELMIRON [Suspect]
     Active Substance: PENTOSAN POLYSULFATE SODIUM
     Route: 048
     Dates: start: 201704, end: 201708
  4. ELMIRON [Suspect]
     Active Substance: PENTOSAN POLYSULFATE SODIUM
     Route: 048
     Dates: start: 201804, end: 201804
  5. ATROPINE\DIPHENOXYLATE [Concomitant]
     Active Substance: ATROPINE\DIPHENOXYLATE
     Indication: Diarrhoea
     Route: 065
     Dates: start: 201305, end: 201911
  6. DORZOLAMIDE\TIMOLOL [Concomitant]
     Active Substance: DORZOLAMIDE\TIMOLOL
     Indication: Glaucoma
     Route: 065
     Dates: start: 201410, end: 201812
  7. URIBEL [Concomitant]
     Active Substance: HYOSCYAMINE SULFATE\METHENAMINE\METHYLENE BLUE\PHENYL SALICYLATE\SODIUM PHOSPHATE, MONOBASIC, MONOHY
     Indication: Urinary tract disorder
     Route: 065
     Dates: start: 201704, end: 201804
  8. TAMSULOSIN [Concomitant]
     Active Substance: TAMSULOSIN
     Indication: Urinary retention
     Route: 065
     Dates: start: 201808, end: 201909
  9. TRAMADOL [Concomitant]
     Active Substance: TRAMADOL
     Indication: Pain management
     Route: 065
     Dates: start: 201910, end: 202001
  10. FLUOCINONIDE [Concomitant]
     Active Substance: FLUOCINONIDE
     Indication: Skin disorder
  11. FENOFIBRIC ACID [CHOLINE FENOFIBRATE] [Concomitant]
     Indication: Blood cholesterol decreased
     Route: 065
     Dates: start: 201309, end: 201802

REACTIONS (3)
  - Macular degeneration [Not Recovered/Not Resolved]
  - Vitreous detachment [Not Recovered/Not Resolved]
  - Retinal pigmentation [Not Recovered/Not Resolved]

NARRATIVE: CASE EVENT DATE: 20120101
